FAERS Safety Report 6251730-0 (Version None)
Quarter: 2009Q2

REPORT INFORMATION
  Report Type: 
  Country: None (occurrence: None)
  Receive Date: 20090630
  Receipt Date: 20090619
  Transmission Date: 20091009
  Serious: Yes (Hospitalization)
  Sender: FDA-Public Use
  Company Number: US-KINGPHARMUSA00001-K200900730

PATIENT
  Age: 65 Year
  Sex: Female

DRUGS (8)
  1. ALTACE [Suspect]
     Indication: CARDIAC FAILURE
     Dosage: 5 MG, QD
     Route: 048
     Dates: start: 20090221
  2. PREVISCAN [Concomitant]
     Dosage: 20 MG, UNK
     Route: 048
     Dates: start: 20090201
  3. FUROSEMIDE INTENSOL [Concomitant]
     Dosage: 1 U, UNK
     Route: 048
     Dates: start: 20030615
  4. SPIRONOLACTONE [Concomitant]
     Dosage: 1 U, UNK
     Route: 048
     Dates: start: 20090202
  5. BUFLOMEDIL [Concomitant]
     Dosage: 300 MG, UNK
     Route: 048
     Dates: start: 20030615
  6. CRESTOR [Concomitant]
     Dosage: 10 MG, UNK
     Route: 048
     Dates: start: 20030615
  7. ZOPICLONE [Concomitant]
     Dosage: 7.5 MG, UNK
     Route: 048
     Dates: start: 20030615
  8. CORDARONE [Concomitant]

REACTIONS (3)
  - ATRIAL FIBRILLATION [None]
  - DYSPNOEA [None]
  - PALPITATIONS [None]
